FAERS Safety Report 25655029 (Version 1)
Quarter: 2025Q3

REPORT INFORMATION
  Report Type: Spontaneous
  Country: CN (occurrence: CN)
  Receive Date: 20250807
  Receipt Date: 20250807
  Transmission Date: 20251021
  Serious: Yes (Other)
  Sender: PFIZER
  Company Number: CN-PFIZER INC-PV202500094139

PATIENT
  Age: 55 Year
  Sex: Male

DRUGS (3)
  1. CEFOPERAZONE SODIUM\SULBACTAM SODIUM [Suspect]
     Active Substance: CEFOPERAZONE SODIUM\SULBACTAM SODIUM
     Indication: Anti-infective therapy
     Dosage: 3 G, 3X/DAY
     Route: 041
     Dates: start: 20250727, end: 20250730
  2. CEFOPERAZONE SODIUM\SULBACTAM SODIUM [Suspect]
     Active Substance: CEFOPERAZONE SODIUM\SULBACTAM SODIUM
     Dosage: 3 G, 4X/DAY
     Route: 041
     Dates: start: 20250731, end: 20250804
  3. TIGECYCLINE [Suspect]
     Active Substance: TIGECYCLINE
     Indication: Anti-infective therapy
     Dosage: 100 MG, 2X/DAY
     Route: 041
     Dates: start: 20250726, end: 20250804

REACTIONS (3)
  - Anaemia [Not Recovered/Not Resolved]
  - Vitamin K deficiency [Not Recovered/Not Resolved]
  - Off label use [Unknown]

NARRATIVE: CASE EVENT DATE: 20250726
